FAERS Safety Report 6570715-8 (Version None)
Quarter: 2010Q1

REPORT INFORMATION
  Report Type: 
  Country: None (occurrence: None)
  Receive Date: 20100204
  Receipt Date: 20100203
  Transmission Date: 20100710
  Serious: No
  Sender: FDA-Public Use
  Company Number: B0615341A

PATIENT
  Sex: Female

DRUGS (1)
  1. ALLERMIST [Suspect]
     Indication: DRUG USE FOR UNKNOWN INDICATION
     Dosage: 110MCG PER DAY
     Route: 045
     Dates: start: 20090901

REACTIONS (1)
  - EYE PAIN [None]
